FAERS Safety Report 7339363-6 (Version None)
Quarter: 2011Q1

REPORT INFORMATION
  Report Type: 
  Country: None (occurrence: None)
  Receive Date: 20110308
  Receipt Date: 20110228
  Transmission Date: 20110831
  Serious: Yes (Other)
  Sender: FDA-Public Use
  Company Number: US-PFIZER INC-2010167506

PATIENT
  Sex: Male
  Weight: 88 kg

DRUGS (9)
  1. ACETYLSALICYLIC ACID [Concomitant]
     Dosage: 325 MG, UNK
  2. LISINOPRIL [Concomitant]
     Dosage: UNK
  3. TERAZOSIN [Concomitant]
     Dosage: UNK
  4. XALATAN [Suspect]
     Indication: GLAUCOMA
     Dosage: 1 GTT IN EACH EYE QHS
     Route: 047
     Dates: start: 20050607
  5. CENTRUM [Concomitant]
     Dosage: UNK
  6. SERTRALINE [Concomitant]
     Dosage: UNK
  7. AMBIEN [Concomitant]
     Dosage: UNK
  8. METOPROLOL [Concomitant]
     Dosage: UNK
  9. SIMVASTATIN [Concomitant]
     Dosage: UNK

REACTIONS (3)
  - EYE IRRITATION [None]
  - DIZZINESS [None]
  - MYOCARDIAL INFARCTION [None]
